FAERS Safety Report 12955076 (Version 2)
Quarter: 2016Q4

REPORT INFORMATION
  Report Type: Spontaneous
  Country: DE (occurrence: DE)
  Receive Date: 20161118
  Receipt Date: 20161209
  Transmission Date: 20170207
  Serious: Yes (Hospitalization)
  Sender: FDA-Public Use
  Company Number: DE-ROCHE-1856315

PATIENT
  Sex: Female
  Weight: 88 kg

DRUGS (7)
  1. AVASTIN [Suspect]
     Active Substance: BEVACIZUMAB
     Indication: CERVIX CARCINOMA RECURRENT
     Dosage: 6 CYCLES
     Route: 042
     Dates: start: 20160524, end: 20160816
  2. CISPLATIN. [Concomitant]
     Active Substance: CISPLATIN
     Indication: CERVIX CARCINOMA RECURRENT
     Dosage: 6 CYCLES
     Route: 065
  3. EMEND [Concomitant]
     Active Substance: APREPITANT
  4. FENISTIL (GERMANY) [Concomitant]
  5. RANITIC [Concomitant]
     Active Substance: RANITIDINE HYDROCHLORIDE
  6. ONDANSETRON [Concomitant]
     Active Substance: ONDANSETRON
  7. PACLITAXEL. [Concomitant]
     Active Substance: PACLITAXEL
     Indication: CERVIX CARCINOMA RECURRENT
     Dosage: 6 CYCLES
     Route: 065

REACTIONS (3)
  - Necrosis [Not Recovered/Not Resolved]
  - Urogenital fistula [Not Recovered/Not Resolved]
  - Female genital tract fistula [Not Recovered/Not Resolved]

NARRATIVE: CASE EVENT DATE: 20160831
